FAERS Safety Report 11259656 (Version 2)
Quarter: 2015Q3

REPORT INFORMATION
  Report Type: Spontaneous
  Country: US (occurrence: US)
  Receive Date: 20150710
  Receipt Date: 20150803
  Transmission Date: 20151125
  Serious: Yes (Other)
  Sender: FDA-Public Use
  Company Number: US-BAYER-2015-370742

PATIENT
  Age: 22 Year
  Sex: Female

DRUGS (1)
  1. MIRENA [Suspect]
     Active Substance: LEVONORGESTREL
     Indication: CONTRACEPTION
     Dosage: 20 MCG/24HR, CONT
     Route: 015
     Dates: start: 201506

REACTIONS (8)
  - Vaginal haemorrhage [Not Recovered/Not Resolved]
  - Fatigue [None]
  - Menorrhagia [None]
  - Abdominal pain [None]
  - Genital haemorrhage [None]
  - Vaginal haemorrhage [Not Recovered/Not Resolved]
  - Pain [None]
  - Abdominal pain lower [None]

NARRATIVE: CASE EVENT DATE: 201506
